FAERS Safety Report 15021373 (Version 1)
Quarter: 2018Q2

REPORT INFORMATION
  Report Type: Spontaneous
  Country: CA (occurrence: CA)
  Receive Date: 20180601
  Receipt Date: 20180601
  Transmission Date: 20180711
  Serious: Yes (Disabling, Other)
  Sender: FDA-Public Use
  Company Number: None

PATIENT
  Age: 38 Year
  Sex: Female
  Weight: 50.4 kg

DRUGS (3)
  1. AVELOX [Suspect]
     Active Substance: MOXIFLOXACIN HYDROCHLORIDE
     Indication: CHRONIC SINUSITIS
     Dosage: AT BEDTIME
     Route: 048
  2. VITAMIN C [Concomitant]
     Active Substance: ASCORBIC ACID
  3. VITAMIN D [Concomitant]
     Active Substance: CHOLECALCIFEROL

REACTIONS (9)
  - Monoparesis [None]
  - Neuralgia [None]
  - Gait disturbance [None]
  - Insomnia [None]
  - Fatigue [None]
  - Tinnitus [None]
  - Toxicity to various agents [None]
  - Tendonitis [None]
  - Muscular weakness [None]

NARRATIVE: CASE EVENT DATE: 20180504
